FAERS Safety Report 7017058-6 (Version None)
Quarter: 2010Q3

REPORT INFORMATION
  Report Type: 
  Country: None (occurrence: None)
  Receive Date: 20100927
  Receipt Date: 20100922
  Transmission Date: 20110219
  Serious: No
  Sender: FDA-Public Use
  Company Number: US-PFIZER INC-2010056292

PATIENT
  Sex: Female
  Weight: 88.889 kg

DRUGS (1)
  1. XALATAN [Suspect]
     Indication: GLAUCOMA
     Dosage: UNK, DAILY
     Dates: start: 20100401

REACTIONS (2)
  - EYE DISORDER [None]
  - EYE PAIN [None]
